FAERS Safety Report 5370422-3 (Version None)
Quarter: 2007Q2

REPORT INFORMATION
  Report Type: 
  Country: None (occurrence: None)
  Receive Date: 20070625
  Receipt Date: 20070625
  Transmission Date: 20071010
  Serious: Yes (Other)
  Sender: FDA-Public Use
  Company Number: None

PATIENT

DRUGS (1)
  1. AMBIEN [Suspect]

REACTIONS (3)
  - ABNORMAL SLEEP-RELATED EVENT [None]
  - RETROGRADE AMNESIA [None]
  - SLEEP WALKING [None]
